FAERS Safety Report 7344004-8 (Version None)
Quarter: 2011Q1

REPORT INFORMATION
  Report Type: 
  Country: None (occurrence: None)
  Receive Date: 20110310
  Receipt Date: 20100414
  Transmission Date: 20110831
  Serious: No
  Sender: FDA-Public Use
  Company Number: A0855078A

PATIENT
  Sex: Female

DRUGS (2)
  1. NICODERM [Suspect]
     Route: 062
  2. NICORETTE [Suspect]
     Route: 002

REACTIONS (1)
  - DRUG INEFFECTIVE [None]
